FAERS Safety Report 5161874-2 (Version None)
Quarter: 2006Q4

REPORT INFORMATION
  Report Type: 
  Country: None (occurrence: None)
  Receive Date: 20061130
  Receipt Date: 20061013
  Transmission Date: 20070319
  Serious: No
  Sender: FDA-Public Use
  Company Number: US-GLAXOSMITHKLINE-A0623527A

PATIENT
  Age: 60 Year
  Sex: Female

DRUGS (10)
  1. WELLBUTRIN XL [Suspect]
     Indication: DEPRESSION
     Dosage: 150MG PER DAY
     Route: 048
     Dates: start: 20061011
  2. SKELAXIN [Suspect]
     Indication: MUSCULOSKELETAL DISORDER
     Dosage: 800MG AS REQUIRED
     Route: 048
     Dates: start: 20061011
  3. PLAQUENIL [Concomitant]
  4. SALAGEN [Concomitant]
  5. BIOTIN [Concomitant]
  6. OSTEOBIFLEX [Concomitant]
  7. CENTRUM SILVER [Concomitant]
  8. CALCIUM CITRATE [Concomitant]
  9. HYDROCHLOROTHIAZIDE [Concomitant]
  10. LUNESTA [Concomitant]

REACTIONS (2)
  - INSOMNIA [None]
  - STOMACH DISCOMFORT [None]
